FAERS Safety Report 6938263-0 (Version None)
Quarter: 2010Q3

REPORT INFORMATION
  Report Type: 
  Country: None (occurrence: None)
  Receive Date: 20100824
  Receipt Date: 20100810
  Transmission Date: 20110219
  Serious: Yes (Hospitalization, Other)
  Sender: FDA-Public Use
  Company Number: BR-MEDIMMUNE-MEDI-0011431

PATIENT
  Sex: Male
  Weight: 5.6 kg

DRUGS (10)
  1. SYNAGIS [Suspect]
     Indication: BRONCHOPULMONARY DYSPLASIA
     Dates: start: 20100707, end: 20100707
  2. ALBUTEROL SULFATE AUTOHALER [Concomitant]
     Indication: ASTHMA
     Route: 055
     Dates: start: 20100324
  3. DOMPERIDONE [Concomitant]
     Route: 048
     Dates: start: 20100324
  4. OMEPRAZOLE [Concomitant]
     Route: 048
     Dates: start: 20100324
  5. BROMOPRIDE [Concomitant]
     Route: 048
     Dates: start: 20100324
  6. HYDROCHLOROTHIAZIDE [Concomitant]
     Route: 048
     Dates: start: 20100324
  7. HYDROCHLOROTHIAZIDE [Concomitant]
     Indication: BLOOD PRESSURE
  8. UNKNOWN MEDICATION [Concomitant]
     Indication: ASTHMA
     Route: 048
     Dates: start: 20100720
  9. BECLOMETHASONE DIPROPIONATE [Concomitant]
     Indication: ASTHMA
     Route: 055
     Dates: start: 20100707
  10. SPIRONOLACTONE [Concomitant]
     Route: 048
     Dates: start: 20100324

REACTIONS (9)
  - CARDIAC ARREST [None]
  - CARDIAC INFECTION [None]
  - FATIGUE [None]
  - INFLUENZA [None]
  - NASOPHARYNGITIS [None]
  - PLEURAL EFFUSION [None]
  - PNEUMONIA [None]
  - RESPIRATORY ARREST [None]
  - SNEEZING [None]
